FAERS Safety Report 5528253-7 (Version None)
Quarter: 2007Q4

REPORT INFORMATION
  Report Type: 
  Country: None (occurrence: None)
  Receive Date: 20071128
  Receipt Date: 20071116
  Transmission Date: 20080405
  Serious: Yes (Other)
  Sender: FDA-Public Use
  Company Number: GB-PFIZER INC-2007084714

PATIENT
  Sex: Female
  Weight: 59.5 kg

DRUGS (11)
  1. CHAMPIX [Suspect]
     Route: 048
     Dates: start: 20070727, end: 20070802
  2. GABAPENTIN [Concomitant]
  3. ATORVASTATIN CALCIUM [Concomitant]
  4. ALBUTEROL [Concomitant]
  5. SERETIDE [Concomitant]
  6. METFORMIN HYDROCHLORIDE [Concomitant]
  7. CO-CODAMOL [Concomitant]
  8. LANSOPRAZOLE [Concomitant]
  9. FENTANYL [Concomitant]
  10. PAROXETINE HCL [Concomitant]
  11. DIAZEPAM [Concomitant]

REACTIONS (7)
  - DIZZINESS [None]
  - EAR PAIN [None]
  - HYPERHIDROSIS [None]
  - HYPOACUSIS [None]
  - MALAISE [None]
  - PARAESTHESIA [None]
  - VERTIGO [None]
